FAERS Safety Report 16682663 (Version 2)
Quarter: 2019Q3

REPORT INFORMATION
  Report Type: Report from Study
  Country: BE (occurrence: BE)
  Receive Date: 20190808
  Receipt Date: 20190823
  Transmission Date: 20191004
  Serious: Yes (Hospitalization, Other)
  Sender: FDA-Public Use
  Company Number: BE-MYLANLABS-2019M1073354

PATIENT
  Age: 67 Year
  Sex: Female
  Weight: 52.3 kg

DRUGS (2)
  1. IMATINIB. [Suspect]
     Active Substance: IMATINIB MESYLATE
     Dosage: 400 MILLIGRAM, QD
     Route: 048
     Dates: start: 20180125
  2. IMATINIB. [Suspect]
     Active Substance: IMATINIB MESYLATE
     Indication: CHRONIC GRAFT VERSUS HOST DISEASE
     Dosage: 400 MG, QD
     Route: 048
     Dates: start: 20171214

REACTIONS (10)
  - Lichen sclerosus [Recovered/Resolved]
  - Pyrexia [Recovered/Resolved]
  - Diarrhoea [Recovered/Resolved]
  - Urosepsis [Recovered/Resolved]
  - Hip fracture [Recovered/Resolved]
  - Asthenia [Recovered/Resolved]
  - Oral herpes [Unknown]
  - Escherichia bacteraemia [Recovered/Resolved]
  - Pneumonia pneumococcal [Recovered/Resolved]
  - Nausea [Recovered/Resolved]

NARRATIVE: CASE EVENT DATE: 20180125
